FAERS Safety Report 15566114 (Version 2)
Quarter: 2018Q4

REPORT INFORMATION
  Report Type: Report from Study
  Country: CR (occurrence: CR)
  Receive Date: 20181030
  Receipt Date: 20181102
  Transmission Date: 20190205
  Serious: Yes (Other)
  Sender: FDA-Public Use
  Company Number: CR-SANIK-2018SA296074AA

PATIENT
  Age: 68 Year
  Sex: Female

DRUGS (1)
  1. CLOPIDOGREL BISULFATE. [Suspect]
     Active Substance: CLOPIDOGREL BISULFATE
     Indication: THROMBOSIS PROPHYLAXIS
     Dosage: 75 MG, QD
     Route: 048
     Dates: start: 201110

REACTIONS (3)
  - Retinal detachment [Not Recovered/Not Resolved]
  - Constipation [Recovered/Resolved]
  - Macular detachment [Not Recovered/Not Resolved]

NARRATIVE: CASE EVENT DATE: 20180730
